FAERS Safety Report 11466135 (Version 1)
Quarter: 2015Q3

REPORT INFORMATION
  Report Type: Spontaneous
  Country: AT (occurrence: AT)
  Receive Date: 20150907
  Receipt Date: 20150907
  Transmission Date: 20151125
  Serious: Yes (Other)
  Sender: FDA-Public Use
  Company Number: AT-BAYER-2015-409717

PATIENT
  Age: 43 Year
  Sex: Female

DRUGS (1)
  1. CIPROFLOXACIN. [Suspect]
     Active Substance: CIPROFLOXACIN
     Dosage: UNK
     Dates: start: 201503

REACTIONS (6)
  - Burning sensation [None]
  - Asphyxia [None]
  - Tendon discomfort [None]
  - Tinnitus [None]
  - Migraine [None]
  - Musculoskeletal discomfort [None]
